FAERS Safety Report 6985748-7 (Version None)
Quarter: 2010Q3

REPORT INFORMATION
  Report Type: 
  Country: None (occurrence: None)
  Receive Date: 20100915
  Receipt Date: 20100908
  Transmission Date: 20110219
  Serious: Yes (Hospitalization)
  Sender: FDA-Public Use
  Company Number: US-WYE-H15138810

PATIENT
  Age: 52 Year
  Sex: Male
  Weight: 89.6 kg

DRUGS (12)
  1. TEMSIROLIMUS [Suspect]
     Indication: CARCINOID TUMOUR
     Dosage: 25MG ON DAYS 1, 8, 15, AND 22 EVERY 28 DAYS
     Route: 042
     Dates: start: 20100212, end: 20100416
  2. TEMSIROLIMUS [Suspect]
     Indication: NEUROENDOCRINE TUMOUR
     Dosage: UNKNOWN DOSE
     Dates: start: 20100507
  3. HYDROCHLOROTHIAZIDE [Concomitant]
  4. PEPCID [Concomitant]
  5. SIMVASTATIN [Concomitant]
  6. NORVASC [Concomitant]
  7. VYTORIN [Concomitant]
  8. INSULIN [Concomitant]
  9. POTASSIUM [Concomitant]
  10. BEVACIZUMAB [Suspect]
     Indication: CARCINOID TUMOUR
     Dosage: 10MG/KG OVER 30-90 MINUTES ON DAYS 1 AND 15
     Route: 042
     Dates: start: 20100212, end: 20100326
  11. BEVACIZUMAB [Suspect]
     Indication: NEUROENDOCRINE TUMOUR
  12. METOPROLOL TARTRATE [Concomitant]

REACTIONS (1)
  - ANAL ULCER [None]
